FAERS Safety Report 19212015 (Version 1)
Quarter: 2021Q2

REPORT INFORMATION
  Report Type: Spontaneous
  Country: DE (occurrence: DE)
  Receive Date: 20210504
  Receipt Date: 20210504
  Transmission Date: 20210717
  Serious: Yes (Other)
  Sender: FDA-Public Use
  Company Number: DE-UCBSA-2021020721

PATIENT
  Age: 51 Year
  Sex: Male
  Weight: 73 kg

DRUGS (4)
  1. XUSAL [Suspect]
     Active Substance: LEVOCETIRIZINE DIHYDROCHLORIDE
     Indication: SEASONAL ALLERGY
     Dosage: 1 TABLET PER DAY AS REQUIRED
     Route: 048
     Dates: start: 20100101
  2. LORANO [Suspect]
     Active Substance: LORATADINE
     Indication: SEASONAL ALLERGY
     Dosage: 1 TAB JE TAG NACH BEDARF
     Route: 048
     Dates: start: 20100101
  3. XUSAL [Suspect]
     Active Substance: LEVOCETIRIZINE DIHYDROCHLORIDE
     Indication: MITE ALLERGY
  4. LORANO [Suspect]
     Active Substance: LORATADINE
     Indication: MITE ALLERGY

REACTIONS (2)
  - Atrial fibrillation [Recovered/Resolved]
  - Arrhythmia [Recovered/Resolved]
